FAERS Safety Report 23925163 (Version 1)
Quarter: 2024Q2

REPORT INFORMATION
  Report Type: Spontaneous
  Country: JP (occurrence: JP)
  Receive Date: 20240531
  Receipt Date: 20240531
  Transmission Date: 20240716
  Serious: Yes (Other)
  Sender: FDA-Public Use
  Company Number: JP-ASTELLAS-2024JP003424

PATIENT
  Age: 80 Year
  Sex: Male
  Weight: 46.2 kg

DRUGS (2)
  1. ZOLPIDEM TARTRATE [Suspect]
     Active Substance: ZOLPIDEM TARTRATE
     Indication: Product used for unknown indication
     Dosage: UNK UNK, UNKNOWN FREQ.
     Route: 048
  2. ZOLPIDEM TARTRATE [Suspect]
     Active Substance: ZOLPIDEM TARTRATE
     Dosage: UNK UNK, UNKNOWN FREQ., ONE HOUR BEFORE MEALS
     Route: 048

REACTIONS (4)
  - Depressed level of consciousness [Unknown]
  - Mastication disorder [Recovering/Resolving]
  - Dysphagia [Recovering/Resolving]
  - Product use issue [Unknown]
